FAERS Safety Report 6372481-8 (Version None)
Quarter: 2009Q3

REPORT INFORMATION
  Report Type: 
  Country: None (occurrence: None)
  Receive Date: 20090924
  Receipt Date: 20080813
  Transmission Date: 20100115
  Serious: Yes (Other)
  Sender: FDA-Public Use
  Company Number: US-ASTRAZENECA-2008UW15601

PATIENT
  Age: 28 Year
  Sex: Female

DRUGS (3)
  1. SEROQUEL [Suspect]
     Indication: BIPOLAR DISORDER
     Dosage: 25-50 MG
     Route: 048
     Dates: start: 20080601
  2. SEROQUEL [Suspect]
     Dosage: 300 MG
     Route: 048
     Dates: start: 20080701
  3. ABILIFY [Concomitant]

REACTIONS (1)
  - ANAPHYLACTIC REACTION [None]
